FAERS Safety Report 11629193 (Version 1)
Quarter: 2015Q4

REPORT INFORMATION
  Report Type: Spontaneous
  Country: US (occurrence: None)
  Receive Date: 20151013
  Receipt Date: 20151013
  Transmission Date: 20160304
  Serious: Yes (Disabling)
  Sender: FDA-Public Use
  Company Number: None

PATIENT
  Age: 50 Year
  Sex: Female
  Weight: 101.61 kg

DRUGS (15)
  1. STINGING NETTLE [Concomitant]
     Active Substance: HERBALS
  2. VITAMIN B COMPLEX [Concomitant]
     Active Substance: CYANOCOBALAMIN\DEXPANTHENOL\NIACINAMIDE\PYRIDOXINE HYDROCHLORIDE\RIBOFLAVIN 5^-PHOSPHATE SODIUM\THIAMINE HYDROCHLORIDE\VITAMIN B COMPLEX
  3. RESVERATROL [Concomitant]
     Active Substance: RESVERATROL
  4. ACETYL L-CARNITINE HCL [Concomitant]
  5. UBIQUINOL [Concomitant]
     Active Substance: UBIQUINOL
  6. ALPHA LIPOIC ACID [Concomitant]
     Active Substance: .ALPHA.-LIPOIC ACID
  7. COCONUT OIL [Concomitant]
     Active Substance: COCONUT OIL
  8. CURCUMIN [Concomitant]
     Active Substance: CURCUMIN
  9. DRISDOL [Concomitant]
     Active Substance: ERGOCALCIFEROL
  10. CEFDNIR [Concomitant]
  11. MAGNESIUM [Concomitant]
     Active Substance: MAGNESIUM
  12. OMEGA 3 [Concomitant]
     Active Substance: OMEGA-3 FATTY ACIDS
  13. L-GLUTAMINE /00503401/ [Concomitant]
     Active Substance: GLUTAMINE
  14. LEVAQUIN [Suspect]
     Active Substance: LEVOFLOXACIN
     Indication: ACUTE SINUSITIS
     Dosage: 30 DAYS, THEN REPEATED 30 DAYS?5 1/2 WEEKS TWICE
     Route: 048
  15. LEVAQUIN [Suspect]
     Active Substance: LEVOFLOXACIN
     Indication: BRONCHITIS
     Dosage: 30 DAYS, THEN REPEATED 30 DAYS?5 1/2 WEEKS TWICE
     Route: 048

REACTIONS (28)
  - Pneumonia [None]
  - Costochondritis [None]
  - Bronchitis [None]
  - Chronic fatigue syndrome [None]
  - Depression [None]
  - Breast cyst [None]
  - Musculoskeletal stiffness [None]
  - Tic [None]
  - Fibromyalgia [None]
  - Anosmia [None]
  - Carpal tunnel syndrome [None]
  - Arthralgia [None]
  - Tendon pain [None]
  - Insomnia [None]
  - Fatigue [None]
  - Pain in extremity [None]
  - Cognitive disorder [None]
  - Dry eye [None]
  - Diplopia [None]
  - Oedema peripheral [None]
  - Neuropathy peripheral [None]
  - Muscle twitching [None]
  - Dyskinesia [None]
  - Joint crepitation [None]
  - Back pain [None]
  - Exercise tolerance decreased [None]
  - Anxiety [None]
  - Memory impairment [None]

NARRATIVE: CASE EVENT DATE: 20121001
